FAERS Safety Report 5959157-3 (Version None)
Quarter: 2008Q4

REPORT INFORMATION
  Report Type: 
  Country: None (occurrence: None)
  Receive Date: 20081120
  Receipt Date: 20080325
  Transmission Date: 20090506
  Serious: No
  Sender: FDA-Public Use
  Company Number: A0718695A

PATIENT
  Age: 53 Year
  Sex: Female
  Weight: 70.5 kg

DRUGS (2)
  1. BUPROPION HYDROCHLORIDE [Suspect]
     Indication: MENOPAUSAL SYMPTOMS
     Dosage: 150MG PER DAY
     Route: 048
     Dates: start: 20080324
  2. NO CONCURRENT MEDICATION [Concomitant]

REACTIONS (1)
  - GASTROOESOPHAGEAL REFLUX DISEASE [None]
